FAERS Safety Report 5366924-6 (Version None)
Quarter: 2007Q2

REPORT INFORMATION
  Report Type: 
  Country: None (occurrence: None)
  Receive Date: 20070619
  Receipt Date: 20070605
  Transmission Date: 20071010
  Serious: Yes (Other)
  Sender: FDA-Public Use
  Company Number: DSA_30024_2007

PATIENT
  Age: 68 Year
  Sex: Female
  Weight: 83.9154 kg

DRUGS (9)
  1. VASOTEC [Suspect]
     Indication: BLOOD PRESSURE MANAGEMENT
     Dosage: (20 MG BID ORAL)
     Route: 048
     Dates: start: 20070528
  2. VASOTEC [Suspect]
     Indication: BLOOD PRESSURE MANAGEMENT
     Dosage: (20 MG BID ORAL)
     Route: 048
  3. NORVASC [Concomitant]
  4. TOPROL-XL [Concomitant]
  5. PREMARIN [Concomitant]
  6. PROVERA [Concomitant]
  7. LASIX [Concomitant]
  8. VYTORIN [Concomitant]
  9. PREDNISONE TAB [Concomitant]

REACTIONS (9)
  - BLOOD PRESSURE INCREASED [None]
  - DIARRHOEA [None]
  - DYSPNOEA [None]
  - FLUSHING [None]
  - IMMOBILE [None]
  - NAUSEA [None]
  - RASH [None]
  - SENSATION OF HEAVINESS [None]
  - TREMOR [None]
